FAERS Safety Report 25862900 (Version 1)
Quarter: 2025Q3

REPORT INFORMATION
  Report Type: Spontaneous
  Country: US (occurrence: US)
  Receive Date: 20250930
  Receipt Date: 20250930
  Transmission Date: 20251021
  Serious: No
  Sender: STALLERGENES
  Company Number: US-STALCOR-2025-AER-02678

PATIENT
  Age: 70 Year
  Sex: Male

DRUGS (1)
  1. ALLERGENIC EXTRACTS [Suspect]
     Active Substance: ALLERGENIC EXTRACTS
     Indication: Product used for unknown indication
     Route: 058

REACTIONS (3)
  - Urticaria [Unknown]
  - Wrong product administered [Unknown]
  - Incorrect dose administered [Unknown]
